FAERS Safety Report 4303840-2 (Version None)
Quarter: 2004Q1

REPORT INFORMATION
  Report Type: 
  Country: None (occurrence: None)
  Receive Date: 20040224
  Receipt Date: 20040224
  Transmission Date: 20041129
  Serious: Yes (Other)
  Sender: FDA-Public Use
  Company Number: None

PATIENT
  Age: 61 Year
  Sex: Male
  Weight: 74.8435 kg

DRUGS (5)
  1. LIPITOR [Suspect]
     Indication: SURGERY
     Dosage: PO HS
     Route: 048
     Dates: start: 20030604
  2. LESCOL XL [Suspect]
     Indication: SURGERY
     Dosage: PO HS
     Route: 048
     Dates: start: 20020515
  3. ASPIRIN [Concomitant]
  4. PROCRIT [Concomitant]
  5. ... [Concomitant]

REACTIONS (2)
  - DIFFICULTY IN WALKING [None]
  - PAIN IN EXTREMITY [None]
